FAERS Safety Report 9396378 (Version 3)
Quarter: 2013Q3

REPORT INFORMATION
  Report Type: Spontaneous
  Country: US (occurrence: US)
  Receive Date: 20130711
  Receipt Date: 20130801
  Transmission Date: 20140515
  Serious: No
  Sender: FDA-Public Use
  Company Number: US-BIOGENIDEC-2013BI062242

PATIENT
  Age: 30 Year
  Sex: Female

DRUGS (2)
  1. AVONEX [Suspect]
     Indication: MULTIPLE SCLEROSIS
     Route: 030
  2. AVONEX [Suspect]
     Indication: MULTIPLE SCLEROSIS
     Route: 030
     Dates: start: 20061017

REACTIONS (11)
  - Amnesia [Not Recovered/Not Resolved]
  - Blindness [Not Recovered/Not Resolved]
  - Lethargy [Not Recovered/Not Resolved]
  - Cognitive disorder [Not Recovered/Not Resolved]
  - Vision blurred [Not Recovered/Not Resolved]
  - Multiple sclerosis [Unknown]
  - General physical health deterioration [Unknown]
  - Memory impairment [Unknown]
  - Confusional state [Not Recovered/Not Resolved]
  - Multiple sclerosis relapse [Unknown]
  - Feeling hot [Unknown]
